FAERS Safety Report 5303380-8 (Version None)
Quarter: 2007Q2

REPORT INFORMATION
  Report Type: 
  Country: None (occurrence: None)
  Receive Date: 20070420
  Receipt Date: 20070411
  Transmission Date: 20071010
  Serious: Yes (Other)
  Sender: FDA-Public Use
  Company Number: GB-JNJFOC-20070402940

PATIENT
  Age: 51 Year
  Sex: Female
  Weight: 25.95 kg

DRUGS (12)
  1. TRAMADOL HCL [Suspect]
     Indication: BACK PAIN
     Route: 048
  2. CEPHALEXIN [Concomitant]
     Route: 048
  3. NYSTATIN [Concomitant]
     Route: 048
  4. PREDNISOLONE [Concomitant]
     Route: 048
  5. SALBUTAMOL [Concomitant]
     Route: 055
  6. CETIRIZINE HCL [Concomitant]
     Route: 048
  7. ZAFIRLUKAST [Concomitant]
     Route: 048
  8. CODEINE PHOSPHATE [Concomitant]
     Route: 048
  9. DIAZEPAM [Concomitant]
     Route: 048
  10. ESTRADIOL, NORETHISTERONE ACETATE [Concomitant]
     Route: 048
  11. SERETIDE [Concomitant]
  12. ZIPAN [Concomitant]
     Route: 048

REACTIONS (1)
  - ASTHMA [None]
